FAERS Safety Report 6389275-X (Version None)
Quarter: 2009Q4

REPORT INFORMATION
  Report Type: 
  Country: None (occurrence: None)
  Receive Date: 20091006
  Receipt Date: 20090924
  Transmission Date: 20100525
  Serious: Yes (Hospitalization)
  Sender: FDA-Public Use
  Company Number: US-RANBAXY-2009RR-28175

PATIENT
  Age: 69 Year
  Sex: Female
  Weight: 62.5 kg

DRUGS (8)
  1. FLECAINIDE ACETATE [Suspect]
     Indication: ATRIAL FIBRILLATION
     Dosage: 100 MG, BID
  2. FLECAINIDE ACETATE [Suspect]
     Dosage: 50 MG, BID
     Route: 048
  3. PAROXETINE [Suspect]
     Indication: MAJOR DEPRESSION
     Dosage: 40 MG, QD
  4. CARVEDILOL [Concomitant]
     Dosage: 12.5 MG, BID
  5. WARFARIN [Concomitant]
     Dosage: 2 MG, QD
  6. LEVOTHYROXINE SODIUM [Concomitant]
     Dosage: 100 UG, QD
  7. PANTOPRAZOLE SODIUM [Concomitant]
     Dosage: 40 MG, QD
  8. FOLIC ACID [Concomitant]
     Dosage: 1 MG, QD

REACTIONS (2)
  - DELIRIUM [None]
  - DRUG INTERACTION [None]
